FAERS Safety Report 23909870 (Version 2)
Quarter: 2024Q2

REPORT INFORMATION
  Report Type: Spontaneous
  Country: JP (occurrence: JP)
  Receive Date: 20240528
  Receipt Date: 20240604
  Transmission Date: 20240716
  Serious: Yes (Hospitalization)
  Sender: FDA-Public Use
  Company Number: JP-BAYER-2024A048213

PATIENT
  Age: 80 Year
  Sex: Male

DRUGS (8)
  1. XOFIGO [Suspect]
     Active Substance: RADIUM RA-223 DICHLORIDE
     Indication: Hormone-refractory prostate cancer
     Dosage: UNK
     Route: 042
     Dates: start: 20240322, end: 20240322
  2. XOFIGO [Suspect]
     Active Substance: RADIUM RA-223 DICHLORIDE
     Indication: Metastases to bone
  3. OLMESARTAN [Concomitant]
     Active Substance: OLMESARTAN
  4. ELDECALCITOL [Concomitant]
     Active Substance: ELDECALCITOL
  5. HERBALS [Concomitant]
     Active Substance: HERBALS
  6. CLOPIDOGREL [Concomitant]
     Active Substance: CLOPIDOGREL BISULFATE
  7. LOXOPROFEN SODIUM [Concomitant]
     Active Substance: LOXOPROFEN SODIUM
  8. CASODEX [Concomitant]
     Active Substance: BICALUTAMIDE
     Indication: Osteoporosis

REACTIONS (6)
  - Metastases to bone [None]
  - Hypercalcaemia [None]
  - Renal failure [Recovering/Resolving]
  - Dyspnoea [Recovering/Resolving]
  - Pleural effusion [Recovering/Resolving]
  - Oedema [Recovering/Resolving]

NARRATIVE: CASE EVENT DATE: 20240329
